FAERS Safety Report 6808312 (Version 2)
Quarter: 2012Q4

REPORT INFORMATION
  Report Type: Report from Study
  Country: US (occurrence: US)
  Receive Date: 20081111
  Receipt Date: 20121204
  Transmission Date: 20130627
  Serious: Yes (Death)
  Sender: FDA-Public Use
  Company Number: US-ROCHE-571705

PATIENT
  Age: 60 Year
  Sex: Female
  Weight: 47.6 kg

DRUGS (6)
  1. CAPECITABINE [Suspect]
     Indication: PANCREATIC CARCINOMA
     Dosage: FREQUENCY: IN MORNING AND IN EVENING
     Route: 048
  2. ASA [Concomitant]
  3. COREG [Concomitant]
  4. LIPITOR [Concomitant]
  5. VITAMIN E [Concomitant]
  6. CALCIUM [Concomitant]

REACTIONS (2)
  - Diarrhoea [Fatal]
  - Haematochezia [Fatal]
